FAERS Safety Report 6875464-4 (Version None)
Quarter: 2010Q3

REPORT INFORMATION
  Report Type: 
  Country: None (occurrence: None)
  Receive Date: 20100727
  Receipt Date: 20100715
  Transmission Date: 20110219
  Serious: Yes (Hospitalization)
  Sender: FDA-Public Use
  Company Number: GB-JNJFOC-20080100188

PATIENT
  Age: 20 Year
  Sex: Male
  Weight: 45 kg

DRUGS (3)
  1. PARACETAMOL [Suspect]
     Route: 050
  2. PARACETAMOL [Suspect]
     Indication: PRODUCT USED FOR UNKNOWN INDICATION
     Dosage: TIMES 10 DOSES
     Route: 050
  3. CARBAMAZEPINE [Interacting]
     Indication: EPILEPSY

REACTIONS (3)
  - ACUTE HEPATIC FAILURE [None]
  - DRUG INTERACTION [None]
  - DRUG TOXICITY [None]
